FAERS Safety Report 24359873 (Version 1)
Quarter: 2024Q3

REPORT INFORMATION
  Report Type: Spontaneous
  Country: US (occurrence: US)
  Receive Date: 20240924
  Receipt Date: 20240924
  Transmission Date: 20241017
  Serious: No
  Sender: ELI LILLY AND CO
  Company Number: US-ELI_LILLY_AND_COMPANY-US202409013783

PATIENT
  Age: 37 Year
  Sex: Male

DRUGS (2)
  1. TALTZ [Suspect]
     Active Substance: IXEKIZUMAB
     Indication: Ankylosing spondylitis
     Dosage: 160 MG, OTHER (LOADING DOSE)
     Route: 058
     Dates: start: 20240828, end: 20240828
  2. METHOTREXATE [Concomitant]
     Active Substance: METHOTREXATE
     Indication: Ankylosing spondylitis
     Dosage: UNK UNK, UNKNOWN
     Route: 065

REACTIONS (4)
  - Stomatitis [Unknown]
  - Paraesthesia oral [Unknown]
  - Drug ineffective [Unknown]
  - Ankylosing spondylitis [Unknown]
